FAERS Safety Report 5326054-6 (Version None)
Quarter: 2007Q2

REPORT INFORMATION
  Report Type: 
  Country: None (occurrence: None)
  Receive Date: 20070516
  Receipt Date: 20070509
  Transmission Date: 20071010
  Serious: No
  Sender: FDA-Public Use
  Company Number: FR-ELI_LILLY_AND_COMPANY-FR200705003729

PATIENT
  Age: 49 Year
  Sex: Female

DRUGS (2)
  1. ZYPREXA [Suspect]
     Dosage: 20 MG, DAILY (1/D)
     Route: 048
     Dates: start: 20061227, end: 20070323
  2. DEPAKOTE [Concomitant]
     Dates: start: 20061227, end: 20070115

REACTIONS (2)
  - LEUKOPENIA [None]
  - NEUTROPENIA [None]
